FAERS Safety Report 8781807 (Version 3)
Quarter: 2012Q4

REPORT INFORMATION
  Report Type: Report from Study
  Country: JP (occurrence: JP)
  Receive Date: 20120913
  Receipt Date: 20121123
  Transmission Date: 20130627
  Serious: Yes (Hospitalization)
  Sender: FDA-Public Use
  Company Number: JP-009507513-1202USA00927

PATIENT
  Age: 35 Year
  Sex: Female

DRUGS (7)
  1. ZOLINZA CAPSULES 100MG [Suspect]
     Indication: MYCOSIS FUNGOIDES
     Dosage: 300 mg, qd
     Route: 048
     Dates: start: 20120301, end: 20120305
  2. ZOLINZA CAPSULES 100MG [Suspect]
     Dosage: 200 mg, qd
     Route: 048
     Dates: start: 20120330, end: 20120408
  3. ZOLINZA CAPSULES 100MG [Suspect]
     Dosage: 200 mg, qd
     Route: 048
     Dates: start: 20111117, end: 20120229
  4. URSO [Concomitant]
     Indication: PROPHYLAXIS
     Dosage: 200 mg, tid
     Route: 048
     Dates: end: 20120416
  5. BAKTAR [Concomitant]
     Indication: ANTIFUNGAL PROPHYLAXIS
     Dosage: 1 DF, qd
     Route: 048
     Dates: end: 20120416
  6. PURSENNID (SENNOSIDES) [Concomitant]
     Indication: CONSTIPATION PROPHYLAXIS
     Dosage: 12 mg, qd
     Route: 048
     Dates: end: 20120416
  7. MAGLAX (MAGNESIUM OXIDE) [Concomitant]
     Indication: CONSTIPATION PROPHYLAXIS
     Dosage: 2 DF, tid
     Route: 048
     Dates: end: 20120416

REACTIONS (12)
  - Alanine aminotransferase increased [Not Recovered/Not Resolved]
  - Aspartate aminotransferase increased [Not Recovered/Not Resolved]
  - Platelet count decreased [Recovering/Resolving]
  - Herpes zoster [Recovered/Resolved]
  - Post herpetic neuralgia [Recovered/Resolved]
  - Nausea [Recovered/Resolved]
  - White blood cell count decreased [Recovered/Resolved]
  - Neutrophil count decreased [Recovered/Resolved]
  - Blood creatinine increased [Recovering/Resolving]
  - Oral candidiasis [Recovered/Resolved]
  - Oesophageal candidiasis [Recovered/Resolved]
  - Platelet count decreased [Not Recovered/Not Resolved]
